FAERS Safety Report 6278580-3 (Version None)
Quarter: 2009Q3

REPORT INFORMATION
  Report Type: 
  Country: None (occurrence: None)
  Receive Date: 20090722
  Receipt Date: 20081110
  Transmission Date: 20100115
  Serious: No
  Sender: FDA-Public Use
  Company Number: US-BAUSCH-2008BL004737

PATIENT
  Age: 41 Year
  Sex: Female

DRUGS (2)
  1. OPCON-A [Suspect]
     Indication: EYE ALLERGY
     Route: 047
     Dates: start: 20081002, end: 20081110
  2. THYROID PREPARATIONS [Concomitant]
     Indication: THYROID DISORDER
     Route: 048

REACTIONS (1)
  - EYE IRRITATION [None]
